FAERS Safety Report 19776329 (Version 2)
Quarter: 2021Q4

REPORT INFORMATION
  Report Type: Spontaneous
  Country: GB (occurrence: GB)
  Receive Date: 20210901
  Receipt Date: 20211227
  Transmission Date: 20220303
  Serious: Yes (Other)
  Sender: FDA-Public Use
  Company Number: GB-EMA-DD-20181127-N9C8J7-154206

PATIENT
  Age: 29 Year
  Sex: Male

DRUGS (35)
  1. DICLOFENAC SODIUM [Suspect]
     Active Substance: DICLOFENAC SODIUM
     Indication: Product used for unknown indication
     Dosage: UNK
     Route: 065
  2. DICLOFENAC SODIUM [Suspect]
     Active Substance: DICLOFENAC SODIUM
     Dosage: UNK
     Route: 065
  3. PREGABALIN [Suspect]
     Active Substance: PREGABALIN
     Indication: Product used for unknown indication
     Dosage: UNK
     Route: 065
  4. PREGABALIN [Suspect]
     Active Substance: PREGABALIN
     Dosage: UNK
     Route: 065
  5. ACETAMINOPHEN [Suspect]
     Active Substance: ACETAMINOPHEN
     Indication: Product used for unknown indication
     Dosage: UNK
     Route: 065
  6. ACETAMINOPHEN [Suspect]
     Active Substance: ACETAMINOPHEN
     Dosage: UNK
     Route: 065
  7. ACETAMINOPHEN [Suspect]
     Active Substance: ACETAMINOPHEN
     Dosage: ENDOTRACHEOPULMONARY INSTILLATION, POWDER AND SOLVENT FOR SOLUTION
     Route: 065
  8. BOTULINUM TOXIN TYPE A [Suspect]
     Active Substance: BOTULINUM TOXIN TYPE A
     Indication: Product used for unknown indication
     Dosage: UNK
     Route: 030
     Dates: start: 2017, end: 2018
  9. BOTULINUM TOXIN TYPE A [Suspect]
     Active Substance: BOTULINUM TOXIN TYPE A
     Dosage: 1 UNK, QCY
     Route: 030
     Dates: start: 2017, end: 2017
  10. BOTULINUM TOXIN TYPE A [Suspect]
     Active Substance: BOTULINUM TOXIN TYPE A
     Dosage: UNK UNK, QD (SINGLE)
     Route: 030
     Dates: start: 2018, end: 2018
  11. BOTULINUM TOXIN TYPE A [Suspect]
     Active Substance: BOTULINUM TOXIN TYPE A
     Route: 065
  12. VALPROATE [Suspect]
     Active Substance: VALPROIC ACID
     Indication: Product used for unknown indication
     Dosage: ENDOTRACHEOPULMONARY INSTILLATION, POWDER AND SOLVENT FOR SOLUTION
     Route: 065
  13. VALPROATE [Suspect]
     Active Substance: VALPROIC ACID
     Dosage: UNK
     Route: 065
  14. VALPROATE [Suspect]
     Active Substance: VALPROIC ACID
     Dosage: UNK
     Route: 065
  15. PROTHIADEN [Suspect]
     Active Substance: DOTHIEPIN HYDROCHLORIDE
     Indication: Product used for unknown indication
     Dosage: UNK
     Route: 065
  16. PROTHIADEN [Suspect]
     Active Substance: DOTHIEPIN HYDROCHLORIDE
     Dosage: UNK
     Route: 065
  17. PROTHIADEN [Suspect]
     Active Substance: DOTHIEPIN HYDROCHLORIDE
     Dosage: ENDOTRACHEOPULMONARY INSTILLATION, POWDER AND SOLVENT FOR SOLUTION
     Route: 065
  18. TRAZODONE HYDROCHLORIDE [Suspect]
     Active Substance: TRAZODONE HYDROCHLORIDE
     Indication: Product used for unknown indication
     Dosage: ENDOTRACHEOPULMONARY INSTILLATION, POWDER AND SOLVENT FOR SOLUTION
     Route: 065
  19. TRAZODONE HYDROCHLORIDE [Suspect]
     Active Substance: TRAZODONE HYDROCHLORIDE
     Dosage: ENDOTRACHEOPULMONARY INSTILLATION, POWDER AND SOLVENT FOR SOLUTION
     Route: 065
  20. TRAZODONE HYDROCHLORIDE [Suspect]
     Active Substance: TRAZODONE HYDROCHLORIDE
     Dosage: ENDOTRACHEOPULMONARY INSTILLATION, POWDER AND SOLVENT FOR SOLUTION
     Route: 065
  21. TRAZODONE HYDROCHLORIDE [Suspect]
     Active Substance: TRAZODONE HYDROCHLORIDE
     Dosage: ENDOTRACHEOPULMONARY INSTILLATION, POWDER AND SOLVENT FOR SOLUTION
     Route: 065
  22. TOPIRAMATE [Suspect]
     Active Substance: TOPIRAMATE
     Indication: Product used for unknown indication
     Dosage: UNK
     Route: 065
  23. TOPIRAMATE [Suspect]
     Active Substance: TOPIRAMATE
     Dosage: UNK
     Route: 065
  24. TOPIRAMATE [Suspect]
     Active Substance: TOPIRAMATE
     Dosage: ENDOTRACHEOPULMONARY INSTILLATION, POWDER AND SOLVENT FOR SOLUTION
     Route: 065
  25. PYRIDOXINE HYDROCHLORIDE\THIAMINE HYDROCHLORIDE [Suspect]
     Active Substance: PYRIDOXINE HYDROCHLORIDE\THIAMINE HYDROCHLORIDE
     Indication: Product used for unknown indication
     Dosage: UNK
     Route: 065
  26. IBUPROFEN [Suspect]
     Active Substance: IBUPROFEN
     Indication: Product used for unknown indication
     Dosage: ENDOTRACHEOPULMONARY INSTILLATION, POWDER AND SOLVENT FOR SOLUTION
     Route: 065
  27. IBUPROFEN [Suspect]
     Active Substance: IBUPROFEN
     Dosage: UNK
     Route: 065
  28. IBUPROFEN [Suspect]
     Active Substance: IBUPROFEN
     Dosage: UNK
     Route: 065
  29. AMITRIPTYLINE HYDROCHLORIDE [Suspect]
     Active Substance: AMITRIPTYLINE HYDROCHLORIDE
     Indication: Product used for unknown indication
     Dosage: ENDOTRACHEOPULMONARY INSTILLATION, POWDER AND SOLVENT FOR SOLUTION
     Route: 065
     Dates: start: 2017, end: 2018
  30. AMITRIPTYLINE HYDROCHLORIDE [Suspect]
     Active Substance: AMITRIPTYLINE HYDROCHLORIDE
     Dosage: UNK
     Route: 065
  31. AMITRIPTYLINE HYDROCHLORIDE [Suspect]
     Active Substance: AMITRIPTYLINE HYDROCHLORIDE
     Dosage: ENDOTRACHEOPULMONARY INSTILLATION, POWDER AND SOLVENT FOR SOLUTION
     Route: 065
  32. AMITRIPTYLINE HYDROCHLORIDE [Suspect]
     Active Substance: AMITRIPTYLINE HYDROCHLORIDE
     Dosage: UNK
     Route: 065
  33. AMITRIPTYLINE HYDROCHLORIDE [Suspect]
     Active Substance: AMITRIPTYLINE HYDROCHLORIDE
     Dosage: UNK
     Route: 065
  34. SERTRALINE HYDROCHLORIDE [Suspect]
     Active Substance: SERTRALINE HYDROCHLORIDE
     Indication: Product used for unknown indication
     Dosage: UNK
     Route: 065
  35. SERTRALINE HYDROCHLORIDE [Suspect]
     Active Substance: SERTRALINE HYDROCHLORIDE
     Dosage: UNK
     Route: 065

REACTIONS (6)
  - Back pain [Unknown]
  - Migraine [Unknown]
  - Neck pain [Unknown]
  - Pain [Unknown]
  - Head discomfort [Unknown]
  - Headache [Unknown]
